FAERS Safety Report 10262950 (Version 2)
Quarter: 2014Q2

REPORT INFORMATION
  Report Type: Report from Study
  Country: US (occurrence: US)
  Receive Date: 20140626
  Receipt Date: 20140626
  Transmission Date: 20141212
  Serious: Yes (Other)
  Sender: FDA-Public Use
  Company Number: US-MYLANLABS-2013S1023928

PATIENT
  Age: 31 Year
  Sex: Female

DRUGS (4)
  1. CLOZAPINE TABLETS [Suspect]
     Indication: PSYCHOTIC DISORDER
     Route: 048
     Dates: start: 20131002, end: 20131024
  2. CLOZAPINE TABLETS [Suspect]
     Indication: PSYCHOTIC DISORDER
     Route: 048
     Dates: start: 20131002, end: 20131024
  3. CLOZAPINE TABLETS [Suspect]
     Indication: PSYCHOTIC DISORDER
     Route: 048
     Dates: start: 20131002, end: 20131024
  4. DEPAKOTE [Concomitant]
     Route: 048
     Dates: start: 20131003

REACTIONS (2)
  - Granulocytopenia [Recovered/Resolved]
  - Leukopenia [Recovered/Resolved]
